FAERS Safety Report 4375236-9 (Version None)
Quarter: 2004Q2

REPORT INFORMATION
  Report Type: 
  Country: None (occurrence: None)
  Receive Date: 20040607
  Receipt Date: 20040527
  Transmission Date: 20050107
  Serious: Yes (Hospitalization)
  Sender: FDA-Public Use
  Company Number: 2004036150

PATIENT
  Sex: Female

DRUGS (1)
  1. BENADRYL [Suspect]
     Dosage: ORAL
     Route: 048
     Dates: start: 20040501

REACTIONS (5)
  - AMNESIA [None]
  - DEHYDRATION [None]
  - FALL [None]
  - FRACTURED COCCYX [None]
  - PELVIC FRACTURE [None]
